FAERS Safety Report 9017345 (Version 1)
Quarter: 2013Q1

REPORT INFORMATION
  Report Type: Spontaneous
  Country: US (occurrence: US)
  Receive Date: 20130117
  Receipt Date: 20130117
  Transmission Date: 20140127
  Serious: Yes (Other)
  Sender: FDA-Public Use
  Company Number: US-FRI-1000041645

PATIENT
  Age: 28 Year
  Sex: Female

DRUGS (6)
  1. VIIBRYD [Suspect]
     Indication: DEPRESSION
     Dosage: 10 MG
     Route: 048
     Dates: start: 2012, end: 2012
  2. VIIBRYD [Suspect]
     Dosage: 20 MG
     Route: 048
     Dates: start: 2012, end: 2012
  3. VIIBRYD [Suspect]
     Dosage: 40 MG
     Route: 048
     Dates: start: 2012
  4. TYLENOL PM [Suspect]
     Indication: INSOMNIA
     Dates: start: 201301, end: 201301
  5. SEROQUEL [Concomitant]
     Indication: INSOMNIA
  6. LAMICTAL [Concomitant]

REACTIONS (6)
  - Cognitive disorder [Recovering/Resolving]
  - Dysarthria [Recovering/Resolving]
  - Muscle twitching [Recovering/Resolving]
  - Night sweats [Recovering/Resolving]
  - Somnolence [Recovering/Resolving]
  - Depression [Unknown]
